FAERS Safety Report 6549689-1 (Version None)
Quarter: 2010Q1

REPORT INFORMATION
  Report Type: 
  Country: None (occurrence: None)
  Receive Date: 20100125
  Receipt Date: 20100114
  Transmission Date: 20100710
  Serious: Yes (Hospitalization)
  Sender: FDA-Public Use
  Company Number: JP-BAYER-200811168BYL

PATIENT
  Age: 66 Year
  Sex: Male

DRUGS (4)
  1. NEXAVAR [Suspect]
     Indication: RENAL CELL CARCINOMA
     Dosage: TOTAL DAILY DOSE: 800 MG  UNIT DOSE: 200 MG
     Route: 048
     Dates: start: 20080519, end: 20080609
  2. FLAVERIC [Concomitant]
     Indication: NASOPHARYNGITIS
     Route: 048
     Dates: start: 20080526, end: 20080608
  3. GASTER D [Concomitant]
     Indication: PROPHYLAXIS AGAINST GASTROINTESTINAL ULCER
     Route: 048
     Dates: start: 20080609
  4. MAGNESIUM OXIDE [Concomitant]
     Indication: CONSTIPATION
     Route: 048
     Dates: start: 20080901

REACTIONS (5)
  - ACUTE CORONARY SYNDROME [None]
  - ALOPECIA [None]
  - BRONCHIOLITIS [None]
  - COUGH [None]
  - HYPERTENSION [None]
